FAERS Safety Report 8573790-4 (Version None)
Quarter: 2012Q3

REPORT INFORMATION
  Report Type: 
  Country: None (occurrence: None)
  Receive Date: 20120806
  Receipt Date: 20120731
  Transmission Date: 20120928
  Serious: Yes (Other)
  Sender: FDA-Public Use
  Company Number: DE-GLAXOSMITHKLINE-D0076575A

PATIENT
  Age: 61 Year
  Sex: Male

DRUGS (2)
  1. VOTRIENT [Suspect]
     Route: 048
     Dates: start: 20120605
  2. SUTENT [Concomitant]
     Route: 048

REACTIONS (5)
  - MADAROSIS [None]
  - WEIGHT DECREASED [None]
  - PIGMENTATION DISORDER [None]
  - RASH [None]
  - PALMAR-PLANTAR ERYTHRODYSAESTHESIA SYNDROME [None]
